FAERS Safety Report 5626505-3 (Version None)
Quarter: 2008Q1

REPORT INFORMATION
  Report Type: 
  Country: None (occurrence: None)
  Receive Date: 20080214
  Receipt Date: 20080204
  Transmission Date: 20080703
  Serious: Yes (Hospitalization)
  Sender: FDA-Public Use
  Company Number: JP-ASTRAZENECA-2008SE00819

PATIENT
  Age: 90 Year
  Sex: Female

DRUGS (7)
  1. BLOPRESS TABLETS 8 [Suspect]
     Indication: HYPERTENSION
     Route: 048
     Dates: end: 20080109
  2. KAYEXALATE [Suspect]
     Indication: HYPERKALAEMIA
     Route: 048
     Dates: start: 20071204, end: 20080108
  3. TAKEPRON OD TABLETS 15 [Concomitant]
     Route: 048
  4. NORVASC [Concomitant]
     Route: 048
  5. LAC B [Concomitant]
     Route: 048
  6. MAGTECT [Concomitant]
     Route: 048
  7. BUTOSIN [Concomitant]
     Route: 065

REACTIONS (2)
  - HYPERKALAEMIA [None]
  - HYPOKALAEMIA [None]
